FAERS Safety Report 25361693 (Version 1)
Quarter: 2025Q2

REPORT INFORMATION
  Report Type: Report from Study
  Country: US (occurrence: US)
  Receive Date: 20250527
  Receipt Date: 20250527
  Transmission Date: 20250717
  Serious: Yes (Hospitalization, Other)
  Sender: GLAXOSMITHKLINE
  Company Number: US-GSK-US2015GSK008613

PATIENT

DRUGS (3)
  1. MEPOLIZUMAB [Suspect]
     Active Substance: MEPOLIZUMAB
     Indication: Hypereosinophilic syndrome
     Route: 042
     Dates: start: 20101117
  2. INTERFERON ALFA NOS [Concomitant]
     Active Substance: INTERFERON ALFA-2A OR INTERFERON ALFA-2B
     Indication: Hypereosinophilic syndrome
     Dosage: 2 ML, QD
     Route: 058
     Dates: start: 20120412
  3. METOPROLOL [Concomitant]
     Active Substance: METOPROLOL
     Indication: Hypertension
     Dosage: 25 MG, BID
     Route: 048

REACTIONS (6)
  - Transient ischaemic attack [Recovered/Resolved]
  - Dehydration [Recovered/Resolved]
  - Aphasia [Recovered/Resolved]
  - Cerebral artery occlusion [Not Recovered/Not Resolved]
  - Urinary tract infection [Unknown]
  - Fall [Recovered/Resolved]

NARRATIVE: CASE EVENT DATE: 20141201
